FAERS Safety Report 8460319 (Version 2)
Quarter: 2013Q2

REPORT INFORMATION
  Report Type: Spontaneous
  Country: US (occurrence: None)
  Receive Date: 20120227
  Receipt Date: 20120525
  Transmission Date: 20140414
  Serious: Yes (Hospitalization, Other)
  Sender: FDA-Public Use
  Company Number: 342544

PATIENT
  Age: 58 Year
  Sex: Male
  Weight: 77.6 kg

DRUGS (4)
  1. VICTOZA [Suspect]
     Indication: TYPE 2 DIABETES MELLITUS
     Dosage: SUBCUTANEOUS
     Route: 058
  2. METFORMIN (METFORMIN) [Concomitant]
  3. LISINOPRIL (LISINOPRIL) [Concomitant]
  4. HCT (HYDROCHLOROTHIAZIDE) [Concomitant]

REACTIONS (5)
  - RENAL FAILURE [None]
  - VOMITING [None]
  - Dehydration [None]
  - Renal failure acute [None]
  - Diarrhoea [None]
